FAERS Safety Report 9814606 (Version 5)
Quarter: 2014Q2

REPORT INFORMATION
  Report Type: Report from Study
  Country: US (occurrence: US)
  Receive Date: 20140113
  Receipt Date: 20140527
  Transmission Date: 20141212
  Serious: Yes (Death, Hospitalization, Other)
  Sender: FDA-Public Use
  Company Number: US-BRISTOL-MYERS SQUIBB COMPANY-19808518

PATIENT
  Age: 83 Year
  Sex: Male

DRUGS (3)
  1. BELATACEPT [Suspect]
     Indication: RENAL TRANSPLANT
     Route: 042
     Dates: start: 20061106, end: 20131028
  2. CELLCEPT [Suspect]
     Dates: start: 20061106
  3. PREDNISONE [Suspect]
     Dates: start: 20061106

REACTIONS (2)
  - Diffuse large B-cell lymphoma [Fatal]
  - Ankle fracture [Not Recovered/Not Resolved]
